FAERS Safety Report 9433689 (Version 1)
Quarter: 2013Q3

REPORT INFORMATION
  Report Type: Spontaneous
  Country: US (occurrence: US)
  Receive Date: 20130731
  Receipt Date: 20130731
  Transmission Date: 20140515
  Serious: Yes (Hospitalization)
  Sender: FDA-Public Use
  Company Number: US-ELI_LILLY_AND_COMPANY-US201307007422

PATIENT
  Sex: Male

DRUGS (3)
  1. INSULIN HUMAN [Suspect]
     Indication: BLOOD GLUCOSE ABNORMAL
     Dosage: 0.14 ML, EACH MORNING
     Dates: start: 2010
  2. INSULIN HUMAN [Suspect]
     Dosage: 0.06 ML, QD
     Dates: start: 2010
  3. INSULIN HUMAN [Suspect]
     Dosage: 0.14 ML, EACH EVENING
     Dates: start: 2010

REACTIONS (1)
  - Staphylococcal infection [Recovered/Resolved]
